FAERS Safety Report 5209042-X (Version None)
Quarter: 2007Q1

REPORT INFORMATION
  Report Type: 
  Country: None (occurrence: None)
  Receive Date: 20070116
  Receipt Date: 20070110
  Transmission Date: 20070707
  Serious: Yes (Other)
  Sender: FDA-Public Use
  Company Number: 2007UW00557

PATIENT
  Age: 65 Year
  Sex: Male
  Weight: 81.6 kg

DRUGS (7)
  1. ZOLADEX [Suspect]
     Indication: PROSTATE CANCER
     Route: 058
     Dates: start: 20061001
  2. CRESTOR [Concomitant]
     Route: 048
  3. FLOMAX [Concomitant]
  4. AVODART [Concomitant]
  5. MACROBID [Concomitant]
  6. PYRIDIUM [Concomitant]
  7. IBUPROFEN [Concomitant]

REACTIONS (7)
  - CRYING [None]
  - DEPRESSION [None]
  - HOT FLUSH [None]
  - POLLAKIURIA [None]
  - URETERIC OBSTRUCTION [None]
  - URINARY RETENTION [None]
  - URINARY TRACT INFECTION [None]
